FAERS Safety Report 5627845-4 (Version None)
Quarter: 2008Q1

REPORT INFORMATION
  Report Type: 
  Country: None (occurrence: None)
  Receive Date: 20080215
  Receipt Date: 20080211
  Transmission Date: 20080703
  Serious: Yes (Other)
  Sender: FDA-Public Use
  Company Number: IT-BAYER-200812428GPV

PATIENT
  Age: 56 Year
  Sex: Female

DRUGS (3)
  1. ASPIRIN [Suspect]
     Indication: INFLUENZA
     Dosage: TOTAL DAILY DOSE: 500 MG  UNIT DOSE: 500 MG
     Route: 048
     Dates: start: 20080103, end: 20080105
  2. TACHIFLUDEC (PARACETAMOL + ASCORBIC ACID + PHENYLEPHRINE) [Suspect]
     Indication: INFLUENZA
     Dosage: TOTAL DAILY DOSE: 6 G  UNIT DOSE: 6 G
     Route: 048
     Dates: start: 20080103, end: 20080105
  3. PRETERAX (PERINDOPRIL + INDAPAMIDE) [Concomitant]
     Indication: ESSENTIAL HYPERTENSION
     Dosage: TOTAL DAILY DOSE: 2.625 MG  UNIT DOSE: 2.625 MG
     Route: 048
     Dates: start: 20080103, end: 20080105

REACTIONS (1)
  - ANGIOEDEMA [None]
